FAERS Safety Report 7016777-5 (Version None)
Quarter: 2010Q3

REPORT INFORMATION
  Report Type: 
  Country: None (occurrence: None)
  Receive Date: 20100927
  Receipt Date: 20100914
  Transmission Date: 20110219
  Serious: Yes (Life-Threatening, Other)
  Sender: FDA-Public Use
  Company Number: IE-GENENTECH-306110

PATIENT
  Sex: Male
  Weight: 68.9 kg

DRUGS (2)
  1. MABTHERA [Suspect]
     Indication: CHRONIC LYMPHOCYTIC LEUKAEMIA
     Dosage: 700 MG, Q28D
     Route: 042
     Dates: start: 20100825, end: 20100825
  2. MABTHERA [Suspect]
     Dosage: UNK
     Route: 042
     Dates: start: 20100826

REACTIONS (7)
  - BRADYCARDIA [None]
  - ERYTHEMA [None]
  - HYPERHIDROSIS [None]
  - HYPOTENSION [None]
  - MUSCULOSKELETAL STIFFNESS [None]
  - NAUSEA [None]
  - UNRESPONSIVE TO STIMULI [None]
